FAERS Safety Report 6186427-9 (Version None)
Quarter: 2009Q2

REPORT INFORMATION
  Report Type: 
  Country: None (occurrence: None)
  Receive Date: 20090511
  Receipt Date: 20090427
  Transmission Date: 20091009
  Serious: Yes (Other)
  Sender: FDA-Public Use
  Company Number: AU-AMGEN-US340307

PATIENT
  Sex: Female
  Weight: 60 kg

DRUGS (3)
  1. ENBREL [Suspect]
     Indication: JUVENILE ARTHRITIS
     Route: 058
     Dates: start: 20090101
  2. HYDROXYCHLOROQUINE SULFATE [Concomitant]
     Indication: ARTHRITIS
     Dosage: 400MG DAILY
     Route: 048
     Dates: start: 20070101
  3. METHOTREXATE [Concomitant]
     Indication: ARTHRITIS
     Dosage: 20MG/WEEK
     Route: 048
     Dates: start: 20070101

REACTIONS (3)
  - GLUCOSE TOLERANCE IMPAIRED [None]
  - LOWER RESPIRATORY TRACT INFECTION [None]
  - TYPE 1 DIABETES MELLITUS [None]
